FAERS Safety Report 25236178 (Version 1)
Quarter: 2025Q2

REPORT INFORMATION
  Report Type: Spontaneous
  Country: US (occurrence: US)
  Receive Date: 20250424
  Receipt Date: 20250424
  Transmission Date: 20250717
  Serious: No
  Sender: GLAXOSMITHKLINE
  Company Number: US-GSKCCFUS-Case-02270701_AE-122965

PATIENT

DRUGS (1)
  1. MEPRON [Suspect]
     Active Substance: ATOVAQUONE
     Indication: Product used for unknown indication

REACTIONS (2)
  - Nausea [Unknown]
  - Vomiting [Unknown]
